FAERS Safety Report 11382726 (Version 1)
Quarter: 2015Q3

REPORT INFORMATION
  Report Type: Spontaneous
  Country: US (occurrence: US)
  Receive Date: 20150814
  Receipt Date: 20150814
  Transmission Date: 20151125
  Serious: Yes (Hospitalization)
  Sender: FDA-Public Use
  Company Number: US-PFIZER INC-2015269674

PATIENT
  Age: 56 Year
  Sex: Female
  Weight: 82 kg

DRUGS (2)
  1. ACYCLOVIR /00587301/ [Interacting]
     Active Substance: ACYCLOVIR
     Dosage: UNK
  2. GEODON [Suspect]
     Active Substance: ZIPRASIDONE HYDROCHLORIDE\ZIPRASIDONE MESYLATE
     Indication: SCHIZOAFFECTIVE DISORDER
     Dosage: 60 MG, 1X/DAY(EVENING)
     Dates: end: 20150802

REACTIONS (2)
  - Drug interaction [Unknown]
  - Drug ineffective [Unknown]
